FAERS Safety Report 21077720 (Version 1)
Quarter: 2022Q3

REPORT INFORMATION
  Report Type: Spontaneous
  Country: US (occurrence: US)
  Receive Date: 20220713
  Receipt Date: 20220713
  Transmission Date: 20221026
  Serious: No
  Sender: FDA-Public Use
  Company Number: US-PFIZER INC-PV202200020674

PATIENT
  Age: 80 Year
  Sex: Male

DRUGS (1)
  1. NORVASC [Suspect]
     Active Substance: AMLODIPINE BESYLATE
     Dosage: UNK

REACTIONS (6)
  - Gastric disorder [Unknown]
  - Balance disorder [Unknown]
  - Anxiety [Unknown]
  - Flushing [Unknown]
  - Dry eye [Unknown]
  - Asthenopia [Unknown]
